FAERS Safety Report 6405315-3 (Version None)
Quarter: 2009Q4

REPORT INFORMATION
  Report Type: 
  Country: None (occurrence: None)
  Receive Date: 20091016
  Receipt Date: 20091016
  Transmission Date: 20100525
  Serious: Yes (Other)
  Sender: FDA-Public Use
  Company Number: None

PATIENT

DRUGS (1)
  1. CIPROFLOXACIN [Suspect]
     Indication: PROSTATE INFECTION
     Dosage: 500 MG 2 X DAILY
     Dates: start: 20090801, end: 20090901

REACTIONS (3)
  - ARTHRALGIA [None]
  - PAIN [None]
  - PAIN IN EXTREMITY [None]
